FAERS Safety Report 4736467-9 (Version None)
Quarter: 2005Q3

REPORT INFORMATION
  Report Type: 
  Country: None (occurrence: None)
  Receive Date: 20050802
  Receipt Date: 20050725
  Transmission Date: 20060218
  Serious: Yes (Other)
  Sender: FDA-Public Use
  Company Number: HQWYE443625JUL05

PATIENT
  Age: 72 Year
  Sex: Male

DRUGS (2)
  1. CONTROLOC                    (PANTOPRAZOLE) [Suspect]
     Indication: GASTROOESOPHAGEAL REFLUX DISEASE
     Dosage: 20 MG 1X PER 1 DAY ORAL
     Route: 048
     Dates: start: 20031001, end: 20050626
  2. DOXAZOSIN         (DOXAZOSIN) [Concomitant]

REACTIONS (3)
  - MEMORY IMPAIRMENT [None]
  - SOMNOLENCE [None]
  - TRANSIENT ISCHAEMIC ATTACK [None]
